FAERS Safety Report 13082665 (Version 4)
Quarter: 2019Q3

REPORT INFORMATION
  Report Type: Spontaneous
  Country: US (occurrence: US)
  Receive Date: 20170103
  Receipt Date: 20190905
  Transmission Date: 20191004
  Serious: Yes (Life-Threatening, Hospitalization, Other)
  Sender: FDA-Public Use
  Company Number: US-JAZZ-2014-US-015407

PATIENT
  Sex: Female

DRUGS (4)
  1. XYREM [Suspect]
     Active Substance: SODIUM OXYBATE
     Indication: FIBROMYALGIA
     Dosage: 3 G, BID
     Route: 048
     Dates: start: 200310, end: 2003
  2. XYREM [Suspect]
     Active Substance: SODIUM OXYBATE
     Dosage: DOSE ADJUSTMENTS
     Route: 048
  3. AIMOVIG [Concomitant]
     Active Substance: ERENUMAB-AOOE
     Indication: MIGRAINE
  4. XYREM [Suspect]
     Active Substance: SODIUM OXYBATE
     Dosage: 4.5 G, BID
     Route: 048
     Dates: start: 201207, end: 201505

REACTIONS (11)
  - Septic shock [Recovering/Resolving]
  - Nephrolithiasis [Unknown]
  - Knee arthroplasty [Unknown]
  - Acute pulmonary oedema [Recovering/Resolving]
  - Nephrolithiasis [Unknown]
  - Lung neoplasm malignant [Unknown]
  - Multiple organ dysfunction syndrome [Recovered/Resolved]
  - Urosepsis [Recovering/Resolving]
  - Escherichia sepsis [Recovering/Resolving]
  - Septic shock [Recovering/Resolving]
  - Unevaluable event [Unknown]

NARRATIVE: CASE EVENT DATE: 2005
